FAERS Safety Report 9524961 (Version 1)
Quarter: 2013Q1

REPORT INFORMATION
  Report Type: Spontaneous
  Country: US (occurrence: None)
  Receive Date: 20130314
  Receipt Date: 20130314
  Transmission Date: 20140127
  Serious: No
  Sender: FDA-Public Use
  Company Number: 1301USA005751

PATIENT
  Age: 57 Year
  Sex: Female

DRUGS (3)
  1. VICTRELIS (BOCEPREVIR) CAPSULE [Suspect]
     Indication: CHRONIC HEPATITIS C
     Dosage: 800 MG, TID, PO
     Route: 048
     Dates: start: 20121116, end: 20121214
  2. RIBAPAK (RIBAVIRIN) [Concomitant]
  3. PEGASYS (PEGINTERFERON ALFA-2A) Y [Concomitant]

REACTIONS (3)
  - Swollen tongue [None]
  - Lip swelling [None]
  - Pharyngeal oedema [None]
